FAERS Safety Report 7219191-2 (Version None)
Quarter: 2011Q1

REPORT INFORMATION
  Report Type: 
  Country: None (occurrence: None)
  Receive Date: 20110111
  Receipt Date: 20110105
  Transmission Date: 20110831
  Serious: Yes (Life-Threatening, Hospitalization)
  Sender: FDA-Public Use
  Company Number: US-US-EMD SERONO, INC.-7023987

PATIENT
  Sex: Female
  Weight: 53 kg

DRUGS (4)
  1. REBIF [Suspect]
     Indication: MULTIPLE SCLEROSIS
     Route: 058
     Dates: start: 20070901, end: 20101110
  2. SYNTHROID [Concomitant]
     Indication: THYROID DISORDER
  3. PREDNISONE [Concomitant]
  4. NEURONTIN [Concomitant]

REACTIONS (3)
  - PAIN IN EXTREMITY [None]
  - AUTOIMMUNE HEPATITIS [None]
  - BLOOD POTASSIUM DECREASED [None]
